FAERS Safety Report 8889813 (Version 8)
Quarter: 2014Q3

REPORT INFORMATION
  Report Type: Spontaneous
  Country: US (occurrence: US)
  Receive Date: 20121107
  Receipt Date: 20140917
  Transmission Date: 20150326
  Serious: Yes (Hospitalization, Other)
  Sender: FDA-Public Use
  Company Number: US-009507513-1210USA012440

PATIENT
  Sex: Female
  Weight: 72.56 kg

DRUGS (4)
  1. FOSAMAX PLUS D [Suspect]
     Active Substance: ALENDRONATE SODIUM\CHOLECALCIFEROL
     Indication: OSTEOPOROSIS
     Dosage: UNK
     Route: 048
  2. HORMONES (UNSPECIFIED) [Concomitant]
     Active Substance: UNSPECIFIED INGREDIENT
     Dosage: UNK
     Dates: start: 1980, end: 20020826
  3. FOSAMAX [Suspect]
     Active Substance: ALENDRONATE SODIUM
     Indication: OSTEOPOROSIS
     Dosage: 70 MG, QW
     Route: 048
     Dates: start: 200106, end: 20101011
  4. FOSAMAX [Suspect]
     Active Substance: ALENDRONATE SODIUM
     Indication: OSTEOPOROSIS
     Dosage: 70 MG, QW
     Route: 048
     Dates: start: 200106, end: 201006

REACTIONS (20)
  - Fall [Unknown]
  - Arthritis [Unknown]
  - Osteopenia [Unknown]
  - Lipids abnormal [Unknown]
  - Periodontal disease [Unknown]
  - Drug hypersensitivity [Unknown]
  - Blood cholesterol increased [Unknown]
  - Hot flush [Unknown]
  - Intramedullary rod insertion [Unknown]
  - Cataract [Unknown]
  - Tooth extraction [Recovered/Resolved]
  - Lichen planus [Unknown]
  - Arteriosclerosis coronary artery [Unknown]
  - Tooth extraction [Unknown]
  - Impaired healing [Recovering/Resolving]
  - Abdominal distension [Unknown]
  - Femur fracture [Recovering/Resolving]
  - Foot fracture [Unknown]
  - Pain [Unknown]
  - Fracture nonunion [Unknown]

NARRATIVE: CASE EVENT DATE: 2001
